FAERS Safety Report 9993619 (Version 1)
Quarter: 2014Q1

REPORT INFORMATION
  Report Type: Spontaneous
  Country: US (occurrence: US)
  Receive Date: 20140310
  Receipt Date: 20140310
  Transmission Date: 20141002
  Serious: Yes (Other)
  Sender: FDA-Public Use
  Company Number: US-MALLINCKRODT-T201401517

PATIENT
  Sex: Male

DRUGS (1)
  1. EXALGO [Suspect]
     Indication: PRODUCT USED FOR UNKNOWN INDICATION
     Dosage: 16 MG, 2 TABS QD
     Route: 065
     Dates: end: 20140304

REACTIONS (5)
  - Gastrointestinal haemorrhage [Unknown]
  - Pain [Unknown]
  - Gastrointestinal tract irritation [Unknown]
  - Product contamination physical [Unknown]
  - Product tampering [Unknown]
